FAERS Safety Report 8914279 (Version 4)
Quarter: 2014Q1

REPORT INFORMATION
  Report Type: Report from Study
  Country: US (occurrence: US)
  Receive Date: 20121116
  Receipt Date: 20140110
  Transmission Date: 20141002
  Serious: Yes (Hospitalization, Other)
  Sender: FDA-Public Use
  Company Number: US-ACTELION-A-NJ2012-74512

PATIENT
  Age: 55 Year
  Sex: Male

DRUGS (2)
  1. TRACLEER [Suspect]
     Indication: PULMONARY ARTERIAL HYPERTENSION
     Dosage: UNK
     Route: 048
     Dates: start: 20120306
  2. ASPIRIN [Concomitant]

REACTIONS (2)
  - Stent placement [Recovering/Resolving]
  - Coronary artery disease [Recovering/Resolving]
